FAERS Safety Report 14277445 (Version 2)
Quarter: 2017Q4

REPORT INFORMATION
  Report Type: Spontaneous
  Country: DE (occurrence: DE)
  Receive Date: 20171212
  Receipt Date: 20171222
  Transmission Date: 20180321
  Serious: Yes (Other)
  Sender: FDA-Public Use
  Company Number: DE-TORRENT-00007370

PATIENT
  Sex: Female

DRUGS (1)
  1. AMLODIPIN [Suspect]
     Active Substance: AMLODIPINE BESYLATE
     Indication: HYPERTENSION

REACTIONS (4)
  - Papilloma [Recovered/Resolved]
  - Haemorrhagic diathesis [Recovered/Resolved]
  - Loose tooth [Recovered/Resolved]
  - Gingival hypertrophy [Recovered/Resolved]
